FAERS Safety Report 9725461 (Version 1)
Quarter: 2013Q4

REPORT INFORMATION
  Report Type: Spontaneous
  Country: US (occurrence: None)
  Receive Date: 20131202
  Receipt Date: 20131202
  Transmission Date: 20140711
  Serious: Yes (Other)
  Sender: FDA-Public Use
  Company Number: None

PATIENT
  Age: 57 Year
  Sex: Female
  Weight: 46.72 kg

DRUGS (1)
  1. TIMOLOL [Suspect]
     Indication: GLAUCOMA
     Dosage: 1 DROP EACH EYE
     Route: 047

REACTIONS (11)
  - Asthenia [None]
  - Hyperhidrosis [None]
  - Feeling abnormal [None]
  - Asthenia [None]
  - Feeling cold [None]
  - Nausea [None]
  - Chills [None]
  - Diarrhoea [None]
  - Listless [None]
  - Lethargy [None]
  - Malaise [None]
